FAERS Safety Report 9345027 (Version 2)
Quarter: 2013Q2

REPORT INFORMATION
  Report Type: Spontaneous
  Country: CN (occurrence: CN)
  Receive Date: 20130612
  Receipt Date: 20130624
  Transmission Date: 20140414
  Serious: Yes (Other)
  Sender: FDA-Public Use
  Company Number: CN-JNJFOC-20130602539

PATIENT
  Age: 1 Year
  Sex: Male
  Weight: 15 kg

DRUGS (2)
  1. IBUPROFEN [Suspect]
     Route: 048
  2. IBUPROFEN [Suspect]
     Indication: PYREXIA
     Dosage: 4ML (EVERY 6 HOURS), 4 TIMES A DAY
     Route: 048
     Dates: start: 20120710, end: 20120711

REACTIONS (3)
  - Granulocytopenia [Recovered/Resolved]
  - Haemoglobin decreased [Recovering/Resolving]
  - Platelet count decreased [Recovering/Resolving]
